FAERS Safety Report 18809115 (Version 1)
Quarter: 2021Q1

REPORT INFORMATION
  Report Type: Spontaneous
  Country: DK (occurrence: DK)
  Receive Date: 20210129
  Receipt Date: 20210129
  Transmission Date: 20210419
  Serious: Yes (Other)
  Sender: FDA-Public Use
  Company Number: DK-TEVA-2021-DK-1873007

PATIENT
  Age: 9 Year
  Sex: Male

DRUGS (3)
  1. HYDROCORTISONE. [Suspect]
     Active Substance: HYDROCORTISONE
     Indication: NON-HODGKIN^S LYMPHOMA STAGE IV
     Dosage: DOSE: UNKNOWN. 3 TIMES TOO MUCH FOR A FEW DAYS IN NOV2016. STRENGTH: UNKNOWN
     Dates: start: 2016
  2. DEXAMETHASONE. [Suspect]
     Active Substance: DEXAMETHASONE
     Indication: NON-HODGKIN^S LYMPHOMA STAGE IV
     Dosage: DOSE: UNKNOWN. WRONG DOSE GIVEN FOR A FEW DAYS AT WITDRAWAL. STRENGTH: UNKNOWN
     Dates: start: 2016
  3. METHOTREXATE. [Suspect]
     Active Substance: METHOTREXATE
     Indication: NON-HODGKIN^S LYMPHOMA STAGE IV
     Dosage: DOSE AND STRENGTH: UNKNOWN.
     Dates: start: 2016

REACTIONS (2)
  - Toxic encephalopathy [Unknown]
  - Incorrect dose administered [Unknown]

NARRATIVE: CASE EVENT DATE: 2016
